FAERS Safety Report 7080291-1 (Version None)
Quarter: 2010Q4

REPORT INFORMATION
  Report Type: 
  Country: None (occurrence: None)
  Receive Date: 20101022
  Receipt Date: 20101005
  Transmission Date: 20110411
  Serious: Yes (Death, Hospitalization, Other)
  Sender: FDA-Public Use
  Company Number: 2010P1001826

PATIENT
  Age: 70 Year
  Sex: Female

DRUGS (5)
  1. CARVEDILOL [Suspect]
     Indication: HYPERTENSION
     Dosage: 12.5 MG;BID
  2. CARVEDILOL [Suspect]
     Indication: TACHYCARDIA
     Dosage: 12.5 MG;BID
  3. CARVEDILOL [Suspect]
     Indication: VENTRICULAR EXTRASYSTOLES
     Dosage: 12.5 MG;BID
  4. SIMVASTATIN [Concomitant]
  5. LEVOTHYROXINE [Concomitant]

REACTIONS (5)
  - MULTI-ORGAN FAILURE [None]
  - RENAL FAILURE [None]
  - SEPSIS [None]
  - TOXIC EPIDERMAL NECROLYSIS [None]
  - WOUND INFECTION STAPHYLOCOCCAL [None]
